FAERS Safety Report 6572512-6 (Version None)
Quarter: 2010Q1

REPORT INFORMATION
  Report Type: 
  Country: None (occurrence: None)
  Receive Date: 20100205
  Receipt Date: 20100128
  Transmission Date: 20100710
  Serious: Yes (Life-Threatening, Hospitalization, Other)
  Sender: FDA-Public Use
  Company Number: DE-AMGEN-QUU381440

PATIENT
  Sex: Male
  Weight: 69 kg

DRUGS (2)
  1. ARANESP [Suspect]
     Indication: RENAL FAILURE CHRONIC
     Route: 058
     Dates: start: 20091016
  2. UNSPECIFIED MEDICATION [Suspect]

REACTIONS (9)
  - ANURIA [None]
  - CARDIAC FAILURE [None]
  - HYPERTENSION [None]
  - HYPERTENSIVE CRISIS [None]
  - MYOCARDIAL ISCHAEMIA [None]
  - PULMONARY OEDEMA [None]
  - RENAL FAILURE [None]
  - RENOVASCULAR HYPERTENSION [None]
  - TROPONIN INCREASED [None]
